FAERS Safety Report 6017847-0 (Version None)
Quarter: 2008Q4

REPORT INFORMATION
  Report Type: 
  Country: None (occurrence: None)
  Receive Date: 20081223
  Receipt Date: 20081215
  Transmission Date: 20090506
  Serious: Yes (Death)
  Sender: FDA-Public Use
  Company Number: US-PFIZER INC-2008153408

PATIENT
  Age: 37 Year
  Sex: Male

DRUGS (9)
  1. GLIPIZIDE [Suspect]
     Dosage: UNK
     Route: 048
  2. METFORMIN HCL [Suspect]
     Dosage: UNK
     Route: 048
  3. SERTRALINE HCL [Suspect]
     Dosage: UNK
     Route: 048
  4. BENZODIAZEPINE DERIVATIVES [Suspect]
     Dosage: UNK
     Route: 048
  5. BETA BLOCKING AGENTS [Suspect]
     Dosage: UNK
     Route: 048
  6. OMEPRAZOLE [Suspect]
     Dosage: UNK
     Route: 048
  7. OLANZAPINE [Suspect]
     Dosage: UNK
     Route: 048
  8. ZOLPIDEM [Suspect]
     Dosage: UNK
     Route: 048
  9. ALL OTHER THERAPEUTIC PRODUCTS [Suspect]
     Dosage: UNK
     Route: 048

REACTIONS (1)
  - COMPLETED SUICIDE [None]
